FAERS Safety Report 7712814-0 (Version None)
Quarter: 2011Q3

REPORT INFORMATION
  Report Type: 
  Country: None (occurrence: None)
  Receive Date: 20110826
  Receipt Date: 20110823
  Transmission Date: 20111222
  Serious: Yes (Hospitalization)
  Sender: FDA-Public Use
  Company Number: DE-GLAXOSMITHKLINE-D0072486A

PATIENT
  Age: 45 Year
  Sex: Male

DRUGS (1)
  1. TROBALT [Suspect]
     Route: 048

REACTIONS (2)
  - URINARY RETENTION [None]
  - MICTURITION DISORDER [None]
